FAERS Safety Report 7680029-0 (Version None)
Quarter: 2011Q3

REPORT INFORMATION
  Report Type: 
  Country: None (occurrence: None)
  Receive Date: 20110812
  Receipt Date: 20110801
  Transmission Date: 20111222
  Serious: Yes (Hospitalization, Other)
  Sender: FDA-Public Use
  Company Number: US-VIROPHARMA INCORPORATED-20110801CINRY2156

PATIENT
  Sex: Female

DRUGS (2)
  1. CINRYZE [Suspect]
     Indication: HEREDITARY ANGIOEDEMA
     Dates: start: 20101201
  2. STEROIDS [Suspect]
     Indication: HEREDITARY ANGIOEDEMA
     Dosage: UNKNOWN

REACTIONS (11)
  - ADRENAL INSUFFICIENCY [None]
  - STRESS [None]
  - IRON DEFICIENCY [None]
  - TACHYCARDIA [None]
  - OXYGEN SATURATION DECREASED [None]
  - ANAEMIA [None]
  - OESOPHAGEAL CANDIDIASIS [None]
  - CONDITION AGGRAVATED [None]
  - HEREDITARY ANGIOEDEMA [None]
  - ORAL CANDIDIASIS [None]
  - FUNGAL INFECTION [None]
